FAERS Safety Report 16795483 (Version 1)
Quarter: 2019Q3

REPORT INFORMATION
  Report Type: Spontaneous
  Country: BR (occurrence: BR)
  Receive Date: 20190911
  Receipt Date: 20190911
  Transmission Date: 20191005
  Serious: Yes (Other)
  Sender: FDA-Public Use
  Company Number: BR-PFIZER INC-2019384307

PATIENT
  Age: 71 Year
  Sex: Female

DRUGS (1)
  1. LYRICA [Suspect]
     Active Substance: PREGABALIN
     Indication: SPINAL DISORDER
     Dosage: 75 MG, 2X/DAY(1 CAPSULE EVERY 12 HOURS)
     Dates: start: 2019

REACTIONS (2)
  - Intervertebral disc protrusion [Unknown]
  - Gait disturbance [Recovering/Resolving]
